FAERS Safety Report 14917442 (Version 2)
Quarter: 2018Q2

REPORT INFORMATION
  Report Type: Report from Study
  Country: AT (occurrence: AT)
  Receive Date: 20180521
  Receipt Date: 20180528
  Transmission Date: 20180711
  Serious: Yes (Hospitalization)
  Sender: FDA-Public Use
  Company Number: AT-ROCHE-2124119

PATIENT
  Age: 66 Year
  Sex: Female

DRUGS (6)
  1. GEMCITABINE [Suspect]
     Active Substance: GEMCITABINE\GEMCITABINE HYDROCHLORIDE
     Indication: OVARIAN EPITHELIAL CANCER
     Dosage: ON 25/04/2018, PATIENT RECEIVED LAST DOSE OF GEMCITABINE BEFORE THE EVENT
     Route: 042
     Dates: start: 20180418
  2. PANTOLOC [Concomitant]
     Active Substance: PANTOPRAZOLE SODIUM
     Route: 065
  3. BLINDED ATEZOLIZUMAB [Suspect]
     Active Substance: ATEZOLIZUMAB
     Indication: OVARIAN EPITHELIAL CANCER
     Dosage: ON 18/04/2018, PATIENT RECEIVED LAST DOSE OF ATEZOLIZUMAB BEFORE THE EVENT
     Route: 042
     Dates: start: 20180418
  4. CARBOPLATIN. [Suspect]
     Active Substance: CARBOPLATIN
     Indication: OVARIAN EPITHELIAL CANCER
     Dosage: (AUC = 4, D1)?ON 18/04/2018, PATIENT RECEIVED LAST DOSE OF CARBOPLATIN BEFORE THE EVENT
     Route: 042
     Dates: start: 20180418
  5. MEXALEN [Concomitant]
     Active Substance: ACETAMINOPHEN
     Route: 065
  6. BEVACIZUMAB. [Suspect]
     Active Substance: BEVACIZUMAB
     Indication: OVARIAN EPITHELIAL CANCER
     Dosage: ON 18/04/2018, PATIENT RECEIVED LAST DOSE OF BEVACIZUMAB BEFORE THE EVENT
     Route: 042
     Dates: start: 20180418

REACTIONS (3)
  - Thrombocytopenia [Recovering/Resolving]
  - Condition aggravated [Recovering/Resolving]
  - Neutropenia [Not Recovered/Not Resolved]

NARRATIVE: CASE EVENT DATE: 20180503
